FAERS Safety Report 7434117-4 (Version None)
Quarter: 2011Q2

REPORT INFORMATION
  Report Type: 
  Country: None (occurrence: None)
  Receive Date: 20110425
  Receipt Date: 20110412
  Transmission Date: 20111010
  Serious: Yes (Hospitalization)
  Sender: FDA-Public Use
  Company Number: BR-SOLVAY-00311003050

PATIENT
  Age: 75 Year
  Sex: Female
  Weight: 45 kg

DRUGS (3)
  1. CHEMOTHERAPY [Concomitant]
     Indication: PANCREATIC CARCINOMA
     Dosage: DAILY DOSE:  UNKNOWN
     Route: 065
     Dates: start: 20090101
  2. CREON [Suspect]
     Indication: PANCREATIC CARCINOMA
     Dosage: DAILY DOSE:  UNKNOWN
     Route: 048
     Dates: start: 20090101
  3. UNSPECIFIED MEDCIATION [Concomitant]
     Indication: PRODUCT USED FOR UNKNOWN INDICATION
     Dosage: DAILY DOSE:  UNKNOWN
     Route: 065

REACTIONS (3)
  - URINARY RETENTION [None]
  - SWELLING [None]
  - HOSPITALISATION [None]
